FAERS Safety Report 6391262-2 (Version None)
Quarter: 2009Q4

REPORT INFORMATION
  Report Type: 
  Country: None (occurrence: None)
  Receive Date: 20091006
  Receipt Date: 20091006
  Transmission Date: 20100525
  Serious: Yes (Other)
  Sender: FDA-Public Use
  Company Number: None

PATIENT
  Age: 52 Year
  Sex: Female
  Weight: 86.1834 kg

DRUGS (2)
  1. CLONAZEPAM [Suspect]
     Dosage: 2 TABLETS BEFORE BED DAILY PO
     Route: 048
     Dates: start: 20090917, end: 20090918
  2. NICORETTE [Suspect]
     Dates: start: 20091005, end: 20091006

REACTIONS (1)
  - APNOEA [None]
